FAERS Safety Report 9258484 (Version 1)
Quarter: 2013Q2

REPORT INFORMATION
  Report Type: Spontaneous
  Country: US (occurrence: None)
  Receive Date: 20130425
  Receipt Date: 20130425
  Transmission Date: 20140414
  Serious: Yes (Death, Life-Threatening, Other)
  Sender: FDA-Public Use
  Company Number: None

PATIENT
  Age: 46 Year
  Sex: Female
  Weight: 40.82 kg

DRUGS (1)
  1. OXYBUTYNIN [Suspect]
     Indication: POLLAKIURIA
     Route: 048

REACTIONS (7)
  - Bronchopneumonia [None]
  - Pharyngitis [None]
  - Somnolence [None]
  - Confusional state [None]
  - Dysphagia [None]
  - Gastrooesophageal reflux disease [None]
  - Choking [None]
